FAERS Safety Report 17155742 (Version 2)
Quarter: 2019Q4

REPORT INFORMATION
  Report Type: Spontaneous
  Country: BR (occurrence: BR)
  Receive Date: 20191215
  Receipt Date: 20191226
  Transmission Date: 20200122
  Serious: Yes (Other)
  Sender: FDA-Public Use
  Company Number: BR-SA-2019SA283349

PATIENT
  Sex: Male
  Weight: 100 kg

DRUGS (5)
  1. GLIFAGE [Concomitant]
     Active Substance: METFORMIN HYDROCHLORIDE
     Indication: DIABETES MELLITUS
     Dosage: TWICE AFTER MEALS
     Route: 048
     Dates: start: 201904
  2. APIDRA [Suspect]
     Active Substance: INSULIN GLULISINE
     Indication: DIABETES MELLITUS
     Dosage: UNK UNK, TID
     Route: 058
     Dates: start: 2009
  3. LANTUS [Suspect]
     Active Substance: INSULIN GLARGINE
     Indication: DIABETES MELLITUS
     Dosage: UNK UNK, TID
     Route: 058
     Dates: start: 2009
  4. HYDROCHLOROTHIAZIDE. [Concomitant]
     Active Substance: HYDROCHLOROTHIAZIDE
     Indication: BLOOD PRESSURE MEASUREMENT
     Dosage: UNK UNK, QD
     Route: 048
     Dates: start: 2014
  5. VALSARTAN. [Concomitant]
     Active Substance: VALSARTAN
     Indication: BLOOD PRESSURE MEASUREMENT
     Dosage: UNK UNK, QD
     Route: 048
     Dates: start: 2014

REACTIONS (23)
  - Prostate cancer recurrent [Unknown]
  - Arthralgia [Unknown]
  - Product storage error [Unknown]
  - Multiple use of single-use product [Unknown]
  - Expired device used [Unknown]
  - Muscular weakness [Not Recovered/Not Resolved]
  - Tooth disorder [Unknown]
  - Weight increased [Unknown]
  - Inappropriate schedule of product administration [Unknown]
  - Vision blurred [Unknown]
  - Injection site bruising [Unknown]
  - Blood testosterone decreased [Not Recovered/Not Resolved]
  - Injection site haemorrhage [Unknown]
  - Gait disturbance [Not Recovered/Not Resolved]
  - Cataract [Unknown]
  - Diabetes mellitus inadequate control [Not Recovered/Not Resolved]
  - Hyperhidrosis [Not Recovered/Not Resolved]
  - Injection site discolouration [Unknown]
  - Injection site pain [Unknown]
  - Injection site inflammation [Unknown]
  - Pain [Not Recovered/Not Resolved]
  - Device operational issue [Unknown]
  - Fatigue [Not Recovered/Not Resolved]

NARRATIVE: CASE EVENT DATE: 201909
